FAERS Safety Report 25217113 (Version 2)
Quarter: 2025Q2

REPORT INFORMATION
  Report Type: Spontaneous
  Country: BE (occurrence: BE)
  Receive Date: 20250419
  Receipt Date: 20250425
  Transmission Date: 20250716
  Serious: Yes (Other)
  Sender: Vantive US Healthcare
  Company Number: BE-VANTIVE-2025VAN001427

PATIENT
  Age: 51 Year
  Sex: Female

DRUGS (4)
  1. CALCIUM CL\DEXTROSE\MAGNESIUM CL\SODIUM BICAR\SODIUM CL\SODIUM LACT [Suspect]
     Active Substance: CALCIUM CHLORIDE\DEXTROSE MONOHYDRATE\MAGNESIUM CHLORIDE\SODIUM BICARBONATE\SODIUM CHLORIDE\SODIUM L
     Route: 033
     Dates: start: 20201008
  2. NUTRINEAL PD4 [Suspect]
     Active Substance: AMINO ACIDS\CALCIUM CHLORIDE\MAGNESIUM CHLORIDE\SODIUM CHLORIDE\SODIUM LACTATE
     Route: 033
     Dates: start: 20201008
  3. EXTRANEAL [Suspect]
     Active Substance: CALCIUM CHLORIDE\ICODEXTRIN\MAGNESIUM CHLORIDE\SODIUM CHLORIDE\SODIUM LACTATE
     Route: 033
     Dates: start: 20201008
  4. CHLORHEXIDINE [Suspect]
     Active Substance: CHLORHEXIDINE
     Route: 065

REACTIONS (7)
  - Mycobacterium fortuitum infection [Recovered/Resolved]
  - Catheter site infection [Recovered/Resolved]
  - Abdominal wall disorder [Unknown]
  - Abdominal wall wound [Unknown]
  - Catheter site granuloma [Unknown]
  - Peritoneal dialysis complication [Unknown]
  - Dermatitis contact [Recovering/Resolving]

NARRATIVE: CASE EVENT DATE: 20221216
